FAERS Safety Report 4281778-7 (Version None)
Quarter: 2004Q1

REPORT INFORMATION
  Report Type: 
  Country: None (occurrence: None)
  Receive Date: 20040129
  Receipt Date: 20040129
  Transmission Date: 20041129
  Serious: Yes (Hospitalization)
  Sender: FDA-Public Use
  Company Number: None

PATIENT
  Age: 63 Year
  Sex: Female
  Weight: 72.1 kg

DRUGS (7)
  1. ASPIRIN [Suspect]
     Indication: MYOCARDIAL INFARCTION
     Dosage: ASPIRIN 325 MG PO DAILY
     Route: 048
  2. ASPIRIN [Suspect]
     Indication: STENT PLACEMENT
     Dosage: ASPIRIN 325 MG PO DAILY
     Route: 048
  3. PLAVIX [Suspect]
     Dosage: PLAVIX 75 MG PO DAILY
     Route: 048
  4. DETROL [Concomitant]
  5. PRAVACHOL [Concomitant]
  6. CALCIUM [Concomitant]
  7. DAILY MULTIPLE VITAMIN [Concomitant]

REACTIONS (1)
  - GASTRIC ULCER HAEMORRHAGE [None]
